FAERS Safety Report 5919995-X (Version None)
Quarter: 2008Q4

REPORT INFORMATION
  Report Type: 
  Country: None (occurrence: None)
  Receive Date: 20081014
  Receipt Date: 20081002
  Transmission Date: 20090506
  Serious: Yes (Hospitalization)
  Sender: FDA-Public Use
  Company Number: 230281K08USA

PATIENT
  Age: 27 Year
  Sex: Male
  Weight: 66 kg

DRUGS (5)
  1. REBIF [Suspect]
     Indication: MULTIPLE SCLEROSIS
     Dosage: 44 MCG, 3 IN 1 WEEKS, SUBCUTANEOUS; 44 MCG
     Route: 058
     Dates: start: 20040924, end: 20080601
  2. REBIF [Suspect]
     Indication: MULTIPLE SCLEROSIS
     Dosage: 44 MCG, 3 IN 1 WEEKS, SUBCUTANEOUS; 44 MCG
     Route: 058
     Dates: start: 20080901, end: 20080901
  3. BACLOFEN [Concomitant]
  4. LYRICA [Concomitant]
  5. VALIUM [Concomitant]

REACTIONS (2)
  - INTERVERTEBRAL DISCITIS [None]
  - NAUSEA [None]
